APPROVED DRUG PRODUCT: DIPHENHYDRAMINE HYDROCHLORIDE
Active Ingredient: DIPHENHYDRAMINE HYDROCHLORIDE
Strength: 12.5MG/5ML
Dosage Form/Route: ELIXIR;ORAL
Application: A087513 | Product #001
Applicant: PHARMACEUTICAL ASSOCIATES INC
Approved: Feb 10, 1982 | RLD: Yes | RS: Yes | Type: RX